FAERS Safety Report 6129115-7 (Version None)
Quarter: 2009Q1

REPORT INFORMATION
  Report Type: 
  Country: None (occurrence: None)
  Receive Date: 20090323
  Receipt Date: 20090323
  Transmission Date: 20090719
  Serious: Yes (Other)
  Sender: FDA-Public Use
  Company Number: None

PATIENT
  Sex: Female
  Weight: 68.0396 kg

DRUGS (2)
  1. NOLVADEX [Suspect]
     Indication: NEOPLASM MALIGNANT
     Dosage: 20MG 1 DAILY ORAL
     Route: 048
     Dates: start: 20080101, end: 20090203
  2. NOLVADEX [Suspect]
     Indication: PROPHYLAXIS
     Dosage: 20MG 1 DAILY ORAL
     Route: 048
     Dates: start: 20080101, end: 20090203

REACTIONS (1)
  - OPTIC NEURITIS [None]
